FAERS Safety Report 23749615 (Version 3)
Quarter: 2024Q2

REPORT INFORMATION
  Report Type: Report from Study
  Country: CH (occurrence: CH)
  Receive Date: 20240416
  Receipt Date: 20240509
  Transmission Date: 20240716
  Serious: Yes (Hospitalization)
  Sender: FDA-Public Use
  Company Number: CH-ABBVIE-5718326

PATIENT
  Sex: Female

DRUGS (7)
  1. CARBIDOPA\LEVODOPA [Suspect]
     Active Substance: CARBIDOPA\LEVODOPA
     Indication: Parkinson^s disease
     Dosage: MD: 5.0 ML, CRD: 4.4 ML/H, ED: 1.5 ML, CRN: 2.1 ML/H?FREQUENCY TEXT: 24H THERAPY
     Route: 050
     Dates: start: 20240122, end: 20240209
  2. CARBIDOPA\LEVODOPA [Suspect]
     Active Substance: CARBIDOPA\LEVODOPA
     Dosage: MD: 5.0 ML, CRD: 3.6 ML/H, ED: 1.5 ML, CRN: 2.1 ML/H?FREQUENCY TEXT: 24H THERAPY
     Route: 050
     Dates: start: 20240102, end: 20240103
  3. CARBIDOPA\LEVODOPA [Suspect]
     Active Substance: CARBIDOPA\LEVODOPA
     Dosage: MD: 3.0 ML, CRD: 4.0 ML/H, ED: 1.5 ML, CRN: 2.1 ML/H?FREQUENCY TEXT: 24H THERAPY
     Route: 050
     Dates: start: 20240209, end: 20240322
  4. CARBIDOPA\LEVODOPA [Suspect]
     Active Substance: CARBIDOPA\LEVODOPA
     Dosage: MD: 3.0 ML, CRD: 3.8 ML/H, ED: 3.0 ML, CRN: 2.1 ML/H?FREQUENCY TEXT: 24H THERAPY
     Route: 050
     Dates: start: 20240322, end: 20240410
  5. CARBIDOPA\LEVODOPA [Suspect]
     Active Substance: CARBIDOPA\LEVODOPA
     Dosage: MD: 3.5 ML, CRD: 1.7 ML/H, ED: 1.0 ML, CRN: 1.5 ML/H?FREQUENCY TEXT: 24H THERAPY
     Route: 050
     Dates: start: 20231212
  6. CARBIDOPA\LEVODOPA [Suspect]
     Active Substance: CARBIDOPA\LEVODOPA
     Dosage: MD: 5.0 ML, CRD: 4.0 ML/H, ED: 1.5 ML, CRN: 2.1 ML/H?FREQUENCY TEXT: 24H THERAPY
     Route: 050
     Dates: start: 20240103, end: 20240122
  7. BENSERAZIDE HYDROCHLORIDE\LEVODOPA [Concomitant]
     Active Substance: BENSERAZIDE HYDROCHLORIDE\LEVODOPA
     Indication: Product used for unknown indication
     Dosage: LEVODOPUM, BENSERAZIDUM
     Route: 048
     Dates: start: 202404

REACTIONS (3)
  - Malaise [Recovered/Resolved]
  - Nausea [Recovered/Resolved]
  - Vomiting [Recovered/Resolved]

NARRATIVE: CASE EVENT DATE: 20230101
